FAERS Safety Report 7624271-3 (Version None)
Quarter: 2011Q3

REPORT INFORMATION
  Report Type: 
  Country: None (occurrence: None)
  Receive Date: 20110720
  Receipt Date: 20110706
  Transmission Date: 20111222
  Serious: Yes (Hospitalization, Other)
  Sender: FDA-Public Use
  Company Number: US-BAYER-201038189NA

PATIENT
  Age: 19 Year
  Sex: Female
  Weight: 59 kg

DRUGS (10)
  1. SKELAXIN [Concomitant]
  2. DROSPIRENONE AND ETHINYL ESTRADIOL [Suspect]
     Indication: PRODUCT USED FOR UNKNOWN INDICATION
     Route: 048
  3. AMOXICILLIN [Concomitant]
     Indication: URINARY TRACT INFECTION
     Dosage: 500 MG, TID
     Route: 048
  4. TIGAN [Concomitant]
     Indication: NAUSEA
     Dosage: UNK UNK, PRN
     Route: 054
  5. YAZ [Suspect]
     Indication: PRODUCT USED FOR UNKNOWN INDICATION
     Route: 048
  6. ANCEF [Concomitant]
  7. ALBUTEROL SULFATE AUTOHALER [Concomitant]
     Dosage: UNK UNK, PRN
     Route: 048
  8. YASMIN [Suspect]
     Indication: PRODUCT USED FOR UNKNOWN INDICATION
     Dosage: UNK
     Route: 048
     Dates: start: 20041121, end: 20060914
  9. MOTRIN [Concomitant]
     Dosage: 800 MG, UNK
  10. DILAUDID [Concomitant]
     Indication: PAIN
     Route: 048

REACTIONS (5)
  - GALLBLADDER DISORDER [None]
  - CHOLELITHIASIS [None]
  - CHOLECYSTITIS ACUTE [None]
  - NEPHROLITHIASIS [None]
  - RENAL FAILURE [None]
